FAERS Safety Report 13519490 (Version 1)
Quarter: 2017Q2

REPORT INFORMATION
  Report Type: Report from Study
  Country: CA (occurrence: CA)
  Receive Date: 20170505
  Receipt Date: 20170505
  Transmission Date: 20170830
  Serious: Yes (Hospitalization, Other)
  Sender: FDA-Public Use
  Company Number: PHHY2017CA050712

PATIENT
  Sex: Female

DRUGS (1)
  1. AFINITOR [Suspect]
     Active Substance: EVEROLIMUS
     Indication: BREAST CANCER
     Dosage: 10 MG, QD
     Route: 048
     Dates: start: 20170306, end: 20170413

REACTIONS (7)
  - Asthenia [Recovering/Resolving]
  - Decreased immune responsiveness [Recovering/Resolving]
  - Red blood cell count decreased [Recovering/Resolving]
  - Erythema [Unknown]
  - Pruritus [Unknown]
  - Haemoglobin decreased [Recovering/Resolving]
  - Swelling face [Unknown]
